FAERS Safety Report 17036777 (Version 1)
Quarter: 2019Q4

REPORT INFORMATION
  Report Type: Spontaneous
  Country: US (occurrence: US)
  Receive Date: 20191115
  Receipt Date: 20191115
  Transmission Date: 20200122
  Serious: Yes (Hospitalization, Other)
  Sender: FDA-Public Use
  Company Number: US-PFIZER INC-2019492360

PATIENT
  Age: 57 Year
  Sex: Female

DRUGS (3)
  1. LINEZOLID. [Suspect]
     Active Substance: LINEZOLID
     Indication: PLEURAL EFFUSION
  2. LINEZOLID. [Suspect]
     Active Substance: LINEZOLID
     Indication: LEUKOCYTOSIS
     Dosage: 600 MG, 2X/DAY(600MG Q12H )
     Route: 048
  3. LINEZOLID. [Suspect]
     Active Substance: LINEZOLID
     Indication: CELLULITIS

REACTIONS (1)
  - Pneumonia staphylococcal [Unknown]
